FAERS Safety Report 4895850-1 (Version None)
Quarter: 2005Q4

REPORT INFORMATION
  Report Type: 
  Country: None (occurrence: None)
  Receive Date: 20051215
  Receipt Date: 20050512
  Transmission Date: 20060501
  Serious: Yes (Hospitalization)
  Sender: FDA-Public Use
  Company Number: 2005075160

PATIENT
  Age: 55 Year
  Sex: Female
  Weight: 86.1834 kg

DRUGS (8)
  1. BEXTRA [Suspect]
     Indication: SYSTEMIC LUPUS ERYTHEMATOSUS
     Dosage: 20 MG (20 MG, 1 IN 1 D), ORAL
     Route: 048
     Dates: end: 20050301
  2. COUMADIN [Suspect]
     Indication: CORONARY ARTERY THROMBOSIS
     Dosage: 5 MG, ORAL
     Route: 048
     Dates: start: 20000901
  3. ALL OTHER THERAPEUTIC PRODUCTS (ALL OTHER THERAPEUTIC PRODUCTS) [Suspect]
     Indication: BRONCHITIS
  4. VASOTEC [Concomitant]
  5. TOPROL-XL [Concomitant]
  6. SYNTHROID [Concomitant]
  7. GLUCOTROL [Concomitant]
  8. ACTOS [Concomitant]

REACTIONS (7)
  - ABDOMINAL PAIN UPPER [None]
  - BRONCHITIS [None]
  - CONTUSION [None]
  - GASTRIC HAEMORRHAGE [None]
  - PRURITUS [None]
  - RASH ERYTHEMATOUS [None]
  - URTICARIA [None]
